FAERS Safety Report 5578577-2 (Version None)
Quarter: 2007Q4

REPORT INFORMATION
  Report Type: 
  Country: None (occurrence: None)
  Receive Date: 20071227
  Receipt Date: 20071206
  Transmission Date: 20080405
  Serious: Yes (Hospitalization)
  Sender: FDA-Public Use
  Company Number: DSA_31019_2007

PATIENT
  Age: 35 Year
  Sex: Male

DRUGS (4)
  1. LORAZEPAM [Suspect]
     Indication: OBSESSIVE-COMPULSIVE DISORDER
     Dosage: (DF ORAL), (DF ORAL)
     Route: 048
  2. FLUVOXAMINE MALEATE [Suspect]
     Indication: OBSESSIVE-COMPULSIVE DISORDER
     Dosage: (DF ORAL)
     Route: 048
  3. RISPERIDONE [Suspect]
     Indication: OBSESSIVE-COMPULSIVE DISORDER
     Dosage: ( 2 MG ORAL, (0.5 MG ORAL)
  4. FLUNITRAZEPAM [Concomitant]

REACTIONS (1)
  - PRIAPISM [None]
